FAERS Safety Report 7015464-7 (Version None)
Quarter: 2010Q3

REPORT INFORMATION
  Report Type: 
  Country: None (occurrence: None)
  Receive Date: 20100927
  Receipt Date: 20100922
  Transmission Date: 20110219
  Serious: Yes (Other)
  Sender: FDA-Public Use
  Company Number: US-ROXANE LABORATORIES, INC.-2010-RO-01260RO

PATIENT
  Age: 64 Year
  Sex: Female

DRUGS (9)
  1. FLUCONAZOLE [Suspect]
     Indication: VULVOVAGINAL CANDIDIASIS
  2. CALCIUM CARBONATE [Suspect]
     Indication: MINERAL SUPPLEMENTATION
  3. OXYCODONE AND ACETAMINOPHEN [Suspect]
     Indication: OSTEOARTHRITIS
  4. LEVOTHYROXINE SODIUM [Suspect]
  5. MULTI-VITAMIN [Suspect]
  6. PROPOXYPHENE HCL AND ACETAMINOPHEN [Suspect]
     Indication: ARTHRALGIA
  7. CYCLOBENZAPRINE [Suspect]
     Indication: ARTHRALGIA
  8. PREGABULIN [Suspect]
     Indication: ARTHRALGIA
  9. METHOCARBAMOL [Suspect]
     Indication: ARTHRALGIA

REACTIONS (2)
  - DRUG ERUPTION [None]
  - DRUG INTOLERANCE [None]
